FAERS Safety Report 13594492 (Version 1)
Quarter: 2017Q2

REPORT INFORMATION
  Report Type: Spontaneous
  Country: US (occurrence: US)
  Receive Date: 20170530
  Receipt Date: 20170530
  Transmission Date: 20170830
  Serious: Yes (Hospitalization, Other)
  Sender: FDA-Public Use
  Company Number: US-ACCORD-051809

PATIENT
  Age: 75 Year
  Sex: Female

DRUGS (3)
  1. TAMOXIFEN [Suspect]
     Active Substance: TAMOXIFEN
     Indication: BREAST CANCER STAGE I
  2. LETROZOLE. [Suspect]
     Active Substance: LETROZOLE
     Indication: BREAST CANCER RECURRENT
     Dates: start: 2010
  3. RALOXIFENE/RALOXIFENE HYDROCHLORIDE [Suspect]
     Active Substance: RALOXIFENE
     Indication: BREAST CANCER STAGE I
     Dates: end: 2010

REACTIONS (5)
  - Asthenia [None]
  - Metastases to bone [None]
  - Breast cancer recurrent [None]
  - Pleural effusion [None]
  - Aortic aneurysm [Unknown]
